FAERS Safety Report 13484013 (Version 1)
Quarter: 2017Q2

REPORT INFORMATION
  Report Type: Spontaneous
  Country: US (occurrence: US)
  Receive Date: 20170425
  Receipt Date: 20170425
  Transmission Date: 20170830
  Serious: Yes (Other)
  Sender: FDA-Public Use
  Company Number: US-AUROBINDO-AUR-APL-2017-33084

PATIENT
  Age: 53 Year
  Sex: Female

DRUGS (2)
  1. METHOTREXATE. [Suspect]
     Active Substance: METHOTREXATE
     Indication: IMMUNOSUPPRESSION
  2. PREDNISONE. [Suspect]
     Active Substance: PREDNISONE
     Indication: IMMUNOSUPPRESSION
     Route: 065

REACTIONS (6)
  - Pain [Recovered/Resolved]
  - Swelling [Recovered/Resolved]
  - Fungal infection [Recovered/Resolved]
  - Tenosynovitis [Recovered/Resolved]
  - Night sweats [Recovered/Resolved]
  - Erythema [Recovered/Resolved]
